FAERS Safety Report 26122627 (Version 1)
Quarter: 2025Q4

REPORT INFORMATION
  Report Type: Spontaneous
  Country: US (occurrence: US)
  Receive Date: 20251204
  Receipt Date: 20251204
  Transmission Date: 20260118
  Serious: No
  Sender: PFIZER
  Company Number: US-PFIZER INC-202500236469

PATIENT
  Age: 44 Year
  Sex: Female

DRUGS (4)
  1. LEVOXYL [Suspect]
     Active Substance: LEVOTHYROXINE SODIUM
     Indication: Autoimmune thyroiditis
     Dosage: 88 UG
  2. LEVOXYL [Suspect]
     Active Substance: LEVOTHYROXINE SODIUM
     Dosage: 75 UG (1.5 X 25?MCG TWICE A DAY)
  3. LEVOXYL [Suspect]
     Active Substance: LEVOTHYROXINE SODIUM
     Dosage: 37.5 UG, (FOR THE PAST THREE DAYS, I HAVE BEEN TAKING HALF OF A 75?MCG TABLET)
  4. SYNTHROID [Suspect]
     Active Substance: LEVOTHYROXINE SODIUM
     Dosage: UNK

REACTIONS (6)
  - Generalised oedema [Unknown]
  - Brain fog [Unknown]
  - Tinnitus [Unknown]
  - Dizziness [Unknown]
  - Condition aggravated [Unknown]
  - Off label use [Unknown]
